FAERS Safety Report 9382158 (Version 2)
Quarter: 2013Q3

REPORT INFORMATION
  Report Type: Spontaneous
  Country: US (occurrence: US)
  Receive Date: 20130703
  Receipt Date: 20130828
  Transmission Date: 20140515
  Serious: Yes (Hospitalization, Disabling, Other)
  Sender: FDA-Public Use
  Company Number: US-ASTRAZENECA-2013SE49319

PATIENT
  Age: 72 Year
  Sex: Female
  Weight: 59.9 kg

DRUGS (6)
  1. FASLODEX [Suspect]
     Indication: BREAST CANCER METASTATIC
     Route: 030
     Dates: start: 201301, end: 2013
  2. FASLODEX [Suspect]
     Indication: BREAST CANCER METASTATIC
     Route: 030
     Dates: start: 20130305, end: 20130625
  3. ARIMIDEX [Suspect]
     Indication: BREAST CANCER METASTATIC
     Route: 048
     Dates: start: 20130305
  4. METFORMIN [Concomitant]
  5. LOPRESSOR [Concomitant]
  6. PRECOSE [Concomitant]

REACTIONS (9)
  - Paraesthesia [Unknown]
  - Peroneal nerve palsy [Recovered/Resolved]
  - Muscular weakness [Unknown]
  - Monoplegia [Recovered/Resolved]
  - Malignant neoplasm of spinal cord [Not Recovered/Not Resolved]
  - Neuropathy peripheral [Recovering/Resolving]
  - Paralysis [Recovering/Resolving]
  - Asthenia [Recovering/Resolving]
  - Hypoaesthesia [Unknown]
